FAERS Safety Report 11371443 (Version 1)
Quarter: 2015Q3

REPORT INFORMATION
  Report Type: Spontaneous
  Country: IT (occurrence: IT)
  Receive Date: 20150812
  Receipt Date: 20150812
  Transmission Date: 20151125
  Serious: Yes (Hospitalization, Other)
  Sender: FDA-Public Use
  Company Number: IT-PFIZER INC-2015258610

PATIENT
  Age: 18 Year
  Sex: Female

DRUGS (2)
  1. PANTOPRAZOLE [Suspect]
     Active Substance: PANTOPRAZOLE SODIUM
     Indication: INTENTIONAL SELF-INJURY
     Dosage: 1360 MG, UNK
     Route: 048
     Dates: start: 20150619, end: 20150619
  2. SIRDALUD [Suspect]
     Active Substance: TIZANIDINE
     Indication: INTENTIONAL SELF-INJURY
     Dosage: 80 MG, UNK (4 MG TABLET, 80 MG TOTAL)
     Route: 048
     Dates: start: 20150619, end: 20150619

REACTIONS (4)
  - Drug abuse [Recovered/Resolved]
  - Sopor [Recovered/Resolved]
  - Intentional self-injury [Recovered/Resolved]
  - Intentional overdose [Recovered/Resolved]

NARRATIVE: CASE EVENT DATE: 20150619
